FAERS Safety Report 13735344 (Version 1)
Quarter: 2017Q3

REPORT INFORMATION
  Report Type: Spontaneous
  Country: BR (occurrence: BR)
  Receive Date: 20170710
  Receipt Date: 20170710
  Transmission Date: 20171127
  Serious: Yes (Life-Threatening)
  Sender: FDA-Public Use
  Company Number: PHHY2012BR081209

PATIENT
  Age: 52 Year
  Sex: Female

DRUGS (2)
  1. DESERILA [Suspect]
     Active Substance: METHYSERGIDE MALEATE
     Indication: DIZZINESS
     Dosage: 2 MG, DAILY
     Route: 048
  2. DESERILA [Suspect]
     Active Substance: METHYSERGIDE MALEATE
     Indication: SYNCOPE

REACTIONS (3)
  - Drug dependence [Unknown]
  - Headache [Not Recovered/Not Resolved]
  - Dizziness [Not Recovered/Not Resolved]
